FAERS Safety Report 15156494 (Version 1)
Quarter: 2018Q3

REPORT INFORMATION
  Report Type: Spontaneous
  Country: CA (occurrence: CA)
  Receive Date: 20180717
  Receipt Date: 20180717
  Transmission Date: 20181010
  Serious: Yes (Life-Threatening)
  Sender: FDA-Public Use
  Company Number: CA-TEVA-2018-CA-924442

PATIENT
  Age: 62 Year
  Sex: Male
  Weight: 100 kg

DRUGS (10)
  1. AZITHROMYCIN ANHYDROUS. [Suspect]
     Active Substance: AZITHROMYCIN ANHYDROUS
     Route: 042
  2. ZOPICLONE [Concomitant]
     Active Substance: ZOPICLONE
  3. BISOPROLOL [Concomitant]
     Active Substance: BISOPROLOL
  4. ENOXAPARIN [Concomitant]
     Active Substance: ENOXAPARIN
  5. IPRATROPIUM/SALBUTAMOL [Concomitant]
     Active Substance: ALBUTEROL\IPRATROPIUM BROMIDE
  6. PREDNISONE. [Concomitant]
     Active Substance: PREDNISONE
  7. ATORVASTATIN CALCIUM. [Concomitant]
     Active Substance: ATORVASTATIN CALCIUM
  8. AZITHROMYCIN ANHYDROUS. [Suspect]
     Active Substance: AZITHROMYCIN ANHYDROUS
     Indication: PNEUMONIA MYCOPLASMAL
     Route: 048
  9. FERROUS GLUCONATE [Concomitant]
     Active Substance: FERROUS GLUCONATE
  10. THYROXINE [Concomitant]
     Active Substance: LEVOTHYROXINE

REACTIONS (7)
  - Atrial flutter [Not Recovered/Not Resolved]
  - Resuscitation [Not Recovered/Not Resolved]
  - Cardiac arrest [Not Recovered/Not Resolved]
  - Atrial fibrillation [Not Recovered/Not Resolved]
  - Cardioversion [Not Recovered/Not Resolved]
  - Hyperbaric oxygen therapy [Not Recovered/Not Resolved]
  - Torsade de pointes [Not Recovered/Not Resolved]
